FAERS Safety Report 7753382-7 (Version None)
Quarter: 2011Q3

REPORT INFORMATION
  Report Type: 
  Country: None (occurrence: None)
  Receive Date: 20110915
  Receipt Date: 20110830
  Transmission Date: 20111222
  Serious: No
  Sender: FDA-Public Use
  Company Number: US-B.I. PHARMACEUTICALS,INC./RIDGEFIELD-2011-BP-07584BP

PATIENT
  Sex: Female
  Weight: 84.87 kg

DRUGS (7)
  1. PRADAXA [Suspect]
     Indication: ATRIAL FIBRILLATION
     Dosage: 300 MG
     Route: 048
     Dates: start: 20110301
  2. SYNTHROID [Concomitant]
     Indication: HYPOTHYROIDISM
     Dosage: 137 MCG
  3. COZAAR [Concomitant]
     Indication: HYPERTENSION
     Dosage: 25 MG
  4. PROMETRIUM [Concomitant]
     Dosage: 200 MG
  5. ACTOS [Concomitant]
     Indication: DIABETES MELLITUS
     Dosage: 30 MG
  6. TIKOSYN [Concomitant]
     Indication: ATRIAL FIBRILLATION
  7. VALIUM [Concomitant]
     Indication: INSOMNIA
     Dosage: 4 MG

REACTIONS (4)
  - HEADACHE [None]
  - SINUS HEADACHE [None]
  - SKIN HAEMORRHAGE [None]
  - PAIN IN JAW [None]
